FAERS Safety Report 8332333-0 (Version None)
Quarter: 2012Q2

REPORT INFORMATION
  Report Type: 
  Country: None (occurrence: None)
  Receive Date: 20120503
  Receipt Date: 20120418
  Transmission Date: 20120825
  Serious: Yes (Other)
  Sender: FDA-Public Use
  Company Number: JP-AMGEN-JPNSP2011060263

PATIENT
  Age: 73 Year
  Sex: Female
  Weight: 50 kg

DRUGS (11)
  1. ONE-ALPHA [Concomitant]
     Indication: OSTEOPOROSIS
     Dosage: 0.5 UG, 1X/DAY
  2. VITAMEDIN                          /00274301/ [Concomitant]
     Indication: HYPOVITAMINOSIS
     Dosage: UNK
  3. SULFASALAZINE [Concomitant]
     Indication: RHEUMATOID ARTHRITIS
     Dosage: 1000 MG/DAY
  4. BUCILLAMINE [Concomitant]
     Indication: INTERSTITIAL LUNG DISEASE
     Dosage: 100 MG/DAY
  5. ENBREL [Suspect]
     Dosage: 25 MG, 2X/WEEK
     Dates: start: 20080818
  6. ENBREL [Suspect]
     Dosage: 25 MG, WEEKLY
     Dates: start: 20081215, end: 20100801
  7. ENBREL [Suspect]
     Dosage: 25 MG, WEEKLY
     Dates: start: 20100901, end: 20110730
  8. ENBREL [Suspect]
     Indication: RHEUMATOID ARTHRITIS
     Dosage: 25 MG, WEEKLY
     Dates: start: 20080305
  9. PREDNISOLONE [Concomitant]
     Indication: RHEUMATOID ARTHRITIS
     Dosage: 3.5 MG, 2X/DAY
     Route: 048
  10. OMEPRAZOLE [Concomitant]
     Indication: PROPHYLAXIS AGAINST GASTROINTESTINAL ULCER
     Dosage: 10 MG, 1X/DAY
     Route: 048
  11. ALENDRONATE SODIUM [Concomitant]
     Indication: OSTEOPOROSIS
     Dosage: 35 MG, WEEKLY

REACTIONS (4)
  - PEMPHIGOID [None]
  - RHEUMATOID VASCULITIS [None]
  - AUTOIMMUNE DISORDER [None]
  - LEUKOCYTOCLASTIC VASCULITIS [None]
